FAERS Safety Report 17726594 (Version 2)
Quarter: 2020Q2

REPORT INFORMATION
  Report Type: Spontaneous
  Country: US (occurrence: US)
  Receive Date: 20200430
  Receipt Date: 20200528
  Transmission Date: 20200714
  Serious: Yes (Hospitalization, Other)
  Sender: FDA-Public Use
  Company Number: US-DRREDDYS-USA/USA/20/0122468

PATIENT
  Age: 33 Year
  Sex: Female

DRUGS (2)
  1. COLCHICINE. [Suspect]
     Active Substance: COLCHICINE
     Dosage: SHE HAD INGESTED 60 TABLETS OF COLCHICINE 0.6MG AS AN INTENTIONAL OVERDOSE
     Route: 048
  2. COLCHICINE. [Suspect]
     Active Substance: COLCHICINE
     Indication: PERICARDITIS
     Route: 048

REACTIONS (13)
  - Acute kidney injury [Recovered/Resolved]
  - Distributive shock [Unknown]
  - Alopecia [Unknown]
  - Coagulopathy [Unknown]
  - Intentional overdose [Unknown]
  - Shock [Unknown]
  - Cardiac failure congestive [Recovered/Resolved]
  - Renal failure [Recovered/Resolved]
  - Transaminases increased [Recovered/Resolved]
  - Paralysis [Unknown]
  - Neutropenia [Unknown]
  - Multiple organ dysfunction syndrome [Recovering/Resolving]
  - Hypotension [Unknown]
